FAERS Safety Report 4526600-6 (Version None)
Quarter: 2004Q4

REPORT INFORMATION
  Report Type: 
  Country: None (occurrence: None)
  Receive Date: 20041213
  Receipt Date: 20041130
  Transmission Date: 20050328
  Serious: Yes (Other)
  Sender: FDA-Public Use
  Company Number: 2004088706

PATIENT
  Age: 71 Year
  Sex: Female
  Weight: 48.9885 kg

DRUGS (4)
  1. NORVASC [Suspect]
     Indication: HYPERTENSION
     Dosage: 5 MG (1 IN 1 D), ORAL
     Route: 048
     Dates: start: 20030301
  2. DYAZIDE [Suspect]
     Indication: HYPERTENSION
     Dosage: 37.5-25 (UNKNOWN), UNKNOWN
     Dates: start: 20030301, end: 20040901
  3. TETRACYCLINE [Suspect]
     Indication: CHALAZION
     Dosage: 250 MG (UNKNOWN) UNKNOWN
     Dates: start: 20030813, end: 20040201
  4. IMIQUIMOD [Suspect]
     Indication: ILL-DEFINED DISORDER

REACTIONS (7)
  - BASAL CELL CARCINOMA [None]
  - BLOOD PRESSURE INCREASED [None]
  - DRY MOUTH [None]
  - GINGIVAL PAIN [None]
  - GLOSSODYNIA [None]
  - ROSACEA [None]
  - TONGUE DISORDER [None]
